FAERS Safety Report 17396590 (Version 1)
Quarter: 2020Q1

REPORT INFORMATION
  Report Type: Spontaneous
  Country: US (occurrence: US)
  Receive Date: 20200125
  Receipt Date: 20200125
  Transmission Date: 20200409
  Serious: No
  Sender: FDA-Public Use
  Company Number: None

PATIENT
  Sex: Female

DRUGS (1)
  1. GLATIRAMER ACETATE (12X1ML) 40MG/ML MYLAN [Suspect]
     Active Substance: GLATIRAMER ACETATE
     Indication: MULTIPLE SCLEROSIS
     Route: 058
     Dates: start: 20191230

REACTIONS (9)
  - Headache [None]
  - Back pain [None]
  - Pyrexia [None]
  - Injection site erythema [None]
  - Injection site pruritus [None]
  - Injection site bruising [None]
  - Neck pain [None]
  - Injection site swelling [None]
  - Chills [None]
